FAERS Safety Report 20509171 (Version 1)
Quarter: 2022Q1

REPORT INFORMATION
  Report Type: Spontaneous
  Country: AU (occurrence: AU)
  Receive Date: 20220223
  Receipt Date: 20220223
  Transmission Date: 20220424
  Serious: Yes (Death)
  Sender: FDA-Public Use
  Company Number: AU-009507513-2202AUS006170

PATIENT
  Age: 7 Year
  Sex: Female

DRUGS (6)
  1. CASPOFUNGIN ACETATE [Suspect]
     Active Substance: CASPOFUNGIN ACETATE
  2. AMPHOTERICIN B [Suspect]
     Active Substance: AMPHOTERICIN B
  3. CYCLOPHOSPHAMIDE [Suspect]
     Active Substance: CYCLOPHOSPHAMIDE
  4. PREDNISOLONE [Suspect]
     Active Substance: PREDNISOLONE
  5. MYCOPHENOLATE MOFETIL [Suspect]
     Active Substance: MYCOPHENOLATE MOFETIL
  6. RIFAMPIN [Concomitant]
     Active Substance: RIFAMPIN

REACTIONS (5)
  - Cerebral fungal infection [Fatal]
  - Drug ineffective [Fatal]
  - Mucormycosis [Fatal]
  - Orbital infection [Fatal]
  - Systemic mycosis [Fatal]
